FAERS Safety Report 20510548 (Version 1)
Quarter: 2022Q1

REPORT INFORMATION
  Report Type: Other
  Country: US (occurrence: None)
  Receive Date: 20220224
  Receipt Date: 20220224
  Transmission Date: 20220424
  Serious: Yes (Hospitalization)
  Sender: FDA-Public Use
  Company Number: US-ROCHE-3028065

PATIENT
  Sex: Female
  Weight: 103.51 kg

DRUGS (12)
  1. OCREVUS [Suspect]
     Active Substance: OCRELIZUMAB
     Indication: Primary progressive multiple sclerosis
     Dosage: LAST DATE OF TREATMENT: 14/OCT/2021, DATE OF NEXT TREATMENT: 14/APR/2022
     Route: 042
     Dates: start: 201907
  2. CYCLOBENZAPRINE [Concomitant]
     Active Substance: CYCLOBENZAPRINE
     Indication: Muscle spasms
     Dosage: STARTED AT LEAST IN 2018
     Route: 048
  3. ASPIRIN [Concomitant]
     Active Substance: ASPIRIN
     Indication: Cerebrovascular accident
     Route: 048
     Dates: start: 202110
  4. PREGABALIN [Concomitant]
     Active Substance: PREGABALIN
     Indication: Neuralgia
     Route: 048
     Dates: start: 2018
  5. DULOXETINE [Concomitant]
     Active Substance: DULOXETINE
     Dosage: STARTEDT IN PAST 1.5 WEEKS FOR 2 WEEKS AND THEN 60 MG DAILY
     Route: 048
     Dates: start: 202202
  6. FERROUS SULFATE [Concomitant]
     Active Substance: FERROUS SULFATE
     Indication: Anaemia
     Route: 048
     Dates: start: 202110
  7. NORTRIPTYLINE [Concomitant]
     Active Substance: NORTRIPTYLINE
     Indication: Neuralgia
     Route: 048
     Dates: start: 2019
  8. NORTRIPTYLINE [Concomitant]
     Active Substance: NORTRIPTYLINE
     Indication: Insomnia
  9. POTASSIUM CHLORIDE [Concomitant]
     Active Substance: POTASSIUM CHLORIDE
     Dosage: 20 % IN7.5 ML
     Route: 048
     Dates: start: 202110
  10. TRAMADOL [Concomitant]
     Active Substance: TRAMADOL
     Indication: Pain in extremity
     Route: 048
     Dates: start: 2017
  11. TRAMADOL [Concomitant]
     Active Substance: TRAMADOL
     Indication: Myalgia
  12. PFIZER-BIONTECH COVID-19 VACCINE [Concomitant]
     Active Substance: TOZINAMERAN
     Indication: COVID-19
     Dosage: 1ST ON -MAR-2021 2ND ON 24-APR-2021 AND BOOSTER ON 07-DEC-2021
     Dates: start: 202103, end: 20211207

REACTIONS (8)
  - COVID-19 [Recovered/Resolved]
  - Renal injury [Recovered/Resolved]
  - Cerebrovascular accident [Not Recovered/Not Resolved]
  - Blood glucose abnormal [Recovered/Resolved]
  - Multiple sclerosis relapse [Recovering/Resolving]
  - Multiple sclerosis [Not Recovered/Not Resolved]
  - Personality change [Not Recovered/Not Resolved]
  - Cardio-respiratory arrest [Recovered/Resolved]

NARRATIVE: CASE EVENT DATE: 20210101
